FAERS Safety Report 7923994 (Version 2)
Quarter: 2013Q2

REPORT INFORMATION
  Report Type: Report from Study
  Country: NL (occurrence: NL)
  Receive Date: 20110502
  Receipt Date: 20130618
  Transmission Date: 20140414
  Serious: Yes (Death, Life-Threatening, Hospitalization, Disabling, Other)
  Sender: FDA-Public Use
  Company Number: NL-BAYER-2011-035361

PATIENT
  Age: 81 Year
  Sex: Male
  Weight: 78 kg

DRUGS (10)
  1. ASPIRIN [Suspect]
     Indication: ACUTE CORONARY SYNDROME
     Dosage: 80 MG, QD
     Route: 048
     Dates: start: 20110131
  2. BIVALIRUDIN [Suspect]
     Indication: PERCUTANEOUS CORONARY INTERVENTION
     Dosage: 0.75 MG/KG /H, UNK
     Route: 042
     Dates: start: 20110130, end: 20110130
  3. BIVALIRUDIN [Suspect]
     Indication: PERCUTANEOUS CORONARY INTERVENTION
     Dosage: 1.75 MG/KG /H, UNK
     Route: 042
     Dates: start: 20110130, end: 20110130
  4. BIVALIRUDIN [Suspect]
     Indication: PERCUTANEOUS CORONARY INTERVENTION
     Dosage: 0.25 MG/KG /H, UNK
     Route: 042
     Dates: start: 20110130, end: 20110131
  5. CLOPIDOGREL [Suspect]
     Indication: ACUTE CORONARY SYNDROME
     Dosage: 75 MG, QD
     Route: 048
     Dates: start: 20110131
  6. DIPYRIDAMOLE [Suspect]
     Indication: MYOCARDIAL ISCHAEMIA
     Dosage: 150 MG, BID
     Route: 048
  7. PRAVASTATIN [Concomitant]
     Dosage: UNK
  8. FLUTICASONE PROPIONATE W/SALMETEROL [Concomitant]
     Dosage: UNK
  9. SALBUTAMOL [Concomitant]
     Dosage: UNK
  10. METOPROLOL [Concomitant]

REACTIONS (3)
  - Aortic aneurysm rupture [Not Recovered/Not Resolved]
  - Procedural complication [Fatal]
  - Multi-organ failure [Not Recovered/Not Resolved]
